FAERS Safety Report 10038056 (Version 1)
Quarter: 2014Q1

REPORT INFORMATION
  Report Type: Spontaneous
  Country: US (occurrence: None)
  Receive Date: 20140325
  Receipt Date: 20140325
  Transmission Date: 20141002
  Serious: Yes (Hospitalization, Other)
  Sender: FDA-Public Use
  Company Number: None

PATIENT
  Age: 79 Year
  Sex: Male
  Weight: 65.6 kg

DRUGS (1)
  1. ABIRATERONE [Suspect]
     Route: 048
     Dates: start: 20130725, end: 20130910

REACTIONS (3)
  - Abdominal distension [None]
  - Asthenia [None]
  - Fatigue [None]
